FAERS Safety Report 16178908 (Version 1)
Quarter: 2019Q2

REPORT INFORMATION
  Report Type: Report from Study
  Country: BR (occurrence: BR)
  Receive Date: 20190410
  Receipt Date: 20190410
  Transmission Date: 20190711
  Serious: Yes (Other)
  Sender: FDA-Public Use
  Company Number: BR-ROCHE-2295558

PATIENT
  Age: 62 Year
  Sex: Female
  Weight: 59.8 kg

DRUGS (9)
  1. ESCITALOPRAM [Concomitant]
     Active Substance: ESCITALOPRAM OXALATE
     Indication: ANXIETY
     Route: 048
     Dates: start: 201610
  2. BUPROPION. [Concomitant]
     Active Substance: BUPROPION
     Indication: ANXIETY
     Route: 048
     Dates: start: 201809
  3. TIBOLONE [Concomitant]
     Active Substance: TIBOLONE
     Route: 048
     Dates: start: 201810
  4. ATEZOLIZUMAB. [Suspect]
     Active Substance: ATEZOLIZUMAB
     Indication: MALIGNANT MELANOMA
     Dosage: DATE OF MOST RECENT DOSE WAS 13/MAR/2019
     Route: 042
     Dates: start: 20181024
  5. BETAMETASONE DIPROPIONATO [Concomitant]
     Indication: RASH
     Dosage: DOSE: 1 OTHER
     Route: 061
     Dates: start: 20190103
  6. ALPRAZOLAM. [Concomitant]
     Active Substance: ALPRAZOLAM
     Indication: ANXIETY
     Route: 048
     Dates: start: 201710
  7. KETOROLAC [Concomitant]
     Active Substance: KETOROLAC\KETOROLAC TROMETHAMINE
     Indication: PAIN
     Route: 048
     Dates: start: 201809
  8. BRIMONIDINE TARTRATE. [Concomitant]
     Active Substance: BRIMONIDINE TARTRATE
     Indication: INTRAOCULAR PRESSURE INCREASED
     Dosage: DOSE: 1 OTHER
     Route: 047
     Dates: start: 20181024
  9. COBIMETINIB. [Suspect]
     Active Substance: COBIMETINIB
     Indication: MALIGNANT MELANOMA
     Dosage: DATE OF MOST RECENT DOSE WAS 05/MAR/2019, DOSE 40 MG?ON A 21 DAYS ON, 7 DAYS OFF SCHEDULE.
     Route: 048
     Dates: start: 20181024

REACTIONS (1)
  - Uveitis [Recovered/Resolved]

NARRATIVE: CASE EVENT DATE: 20190310
